FAERS Safety Report 17960214 (Version 1)
Quarter: 2020Q2

REPORT INFORMATION
  Report Type: Spontaneous
  Country: US (occurrence: US)
  Receive Date: 20200630
  Receipt Date: 20200630
  Transmission Date: 20200714
  Serious: No
  Sender: FDA-Public Use
  Company Number: US-JNJFOC-20200635101

PATIENT

DRUGS (7)
  1. HYDROCORTISONE. [Concomitant]
     Active Substance: HYDROCORTISONE
     Indication: DERMATITIS CONTACT
     Dosage: APPLY A THIN FILM TO AFFECTED AREA 2 TO 4 TIMES DAILY AS NEEDED FOR 5-7 DAYS
     Route: 061
  2. PEPCID [Concomitant]
     Active Substance: FAMOTIDINE
     Indication: DERMATITIS CONTACT
     Dosage: MAX 20 MG/DOSE
     Route: 048
  3. ALLEGRA [Concomitant]
     Active Substance: FEXOFENADINE HYDROCHLORIDE
     Indication: DERMATITIS CONTACT
     Dosage: UP TO TWICE DAILY.
     Route: 065
  4. ZYRTEC [Suspect]
     Active Substance: CETIRIZINE HYDROCHLORIDE
     Indication: DERMATITIS CONTACT
     Dosage: UP TO TWICE DAILY
     Route: 065
  5. NEUTROGENA OIL FREE ACNE WASH REDNESS SOOTHING FACIAL CLEANSER [Concomitant]
     Active Substance: SALICYLIC ACID
     Indication: REMOVAL OF INERT MATTER FROM SKIN OR SUBCUTANEOUS TISSUE
     Route: 061
     Dates: start: 20200529
  6. BENADRYL [Concomitant]
     Active Substance: DIPHENHYDRAMINE HYDROCHLORIDE
     Indication: DERMATITIS CONTACT
     Dosage: 25-50 MG  EVERY 4 HOURS AS NEEDED
     Route: 065
  7. CLARITIN [Concomitant]
     Active Substance: LORATADINE
     Indication: DERMATITIS CONTACT
     Dosage: MAY BE INCREASED TO 10 MG TWICE DAILY IF NEEDED
     Route: 065

REACTIONS (3)
  - Overdose [Unknown]
  - Off label use [Unknown]
  - Product use in unapproved indication [Unknown]
